FAERS Safety Report 9921458 (Version 2)
Quarter: 2014Q1

REPORT INFORMATION
  Report Type: Spontaneous
  Country: SE (occurrence: SE)
  Receive Date: 20140225
  Receipt Date: 20140225
  Transmission Date: 20141002
  Serious: Yes (Hospitalization)
  Sender: FDA-Public Use
  Company Number: SE-ASTRAZENECA-2013SE92882

PATIENT
  Age: 57 Year
  Sex: Female

DRUGS (2)
  1. BRILIQUE [Suspect]
     Route: 048
     Dates: start: 201303, end: 20131127
  2. THROMBYL [Concomitant]

REACTIONS (2)
  - Iron deficiency anaemia [Unknown]
  - Haemorrhage [Unknown]
